FAERS Safety Report 15600669 (Version 4)
Quarter: 2018Q4

REPORT INFORMATION
  Report Type: Spontaneous
  Country: FI (occurrence: FI)
  Receive Date: 20181109
  Receipt Date: 20181229
  Transmission Date: 20190205
  Serious: Yes (Other)
  Sender: FDA-Public Use
  Company Number: FI-AUROBINDO-AUR-APL-2018-022470

PATIENT
  Age: 76 Year
  Sex: Female

DRUGS (23)
  1. ROSUVASTATIN ORION 20MG [Interacting]
     Active Substance: ROSUVASTATIN CALCIUM
     Dosage: STRENGTH: 40 MG; 20 MG X 1
     Route: 048
     Dates: start: 20180110, end: 201802
  2. PRIMASPAN [Suspect]
     Active Substance: ASPIRIN
     Dosage: STRENGTH: 50 MG
     Route: 048
  3. THYROXIN [Suspect]
     Active Substance: LEVOTHYROXINE
     Indication: MUSCULOSKELETAL PAIN
     Dosage: UNK
  4. THYROXIN [Suspect]
     Active Substance: LEVOTHYROXINE
     Dosage: 1 TABLET ON 3 DAYS, HALF TABLET ON 4 DAYS; STRENGTH: 25 MCG
     Route: 048
     Dates: start: 20161214
  5. ZOLT                               /00914902/ [Suspect]
     Active Substance: ZOLPIDEM\ZOLPIDEM TARTRATE
     Dosage: UNK
     Route: 065
  6. SOMAC [Suspect]
     Active Substance: PANTOPRAZOLE SODIUM
     Indication: PRODUCT USED FOR UNKNOWN INDICATION
     Dosage: UNK
     Route: 065
  7. CLOPIDOGREL [Interacting]
     Active Substance: CLOPIDOGREL BISULFATE
     Dosage: UNK
     Route: 065
  8. ZOLT                               /00914902/ [Suspect]
     Active Substance: ZOLPIDEM\ZOLPIDEM TARTRATE
     Indication: ABDOMINAL DISCOMFORT
     Dosage: STRENGTH: 30 MG
     Route: 048
     Dates: start: 20180110, end: 201803
  9. PRIMASPAN [Suspect]
     Active Substance: ASPIRIN
     Indication: CEREBRAL INFARCTION
     Dosage: STRENGTH: 50 MG
     Route: 048
  10. BURANA [Suspect]
     Active Substance: IBUPROFEN
     Dosage: STRENGTH: 800 MG
     Route: 048
     Dates: start: 20161214
  11. CLOPIDOGREL [Interacting]
     Active Substance: CLOPIDOGREL BISULFATE
     Indication: PRODUCT USED FOR UNKNOWN INDICATION
     Dosage: 1 DOSAGE FORM
     Route: 048
     Dates: start: 20180110, end: 201802
  12. THYROXIN [Suspect]
     Active Substance: LEVOTHYROXINE
     Indication: THYROID DISORDER
     Dosage: 1 TABLET ON 3 DAYS, HALF TABLET ON 4 DAYS; STRENGTH: 25 MCG
     Route: 048
     Dates: start: 20161214
  13. HISTEC [Suspect]
     Active Substance: CETIRIZINE HYDROCHLORIDE
     Indication: PRODUCT USED FOR UNKNOWN INDICATION
     Dosage: DAILY
     Route: 065
  14. PANADOL [Concomitant]
     Active Substance: ACETAMINOPHEN
     Indication: PRODUCT USED FOR UNKNOWN INDICATION
     Dosage: UNK
     Route: 065
  15. ZOLT                               /00914902/ [Suspect]
     Active Substance: ZOLPIDEM\ZOLPIDEM TARTRATE
     Indication: GASTRIC DISORDER
     Dosage: 1 DOSAGE FORM
     Route: 048
     Dates: start: 20180110, end: 201802
  16. ROSUVASTATIN ORION 20MG [Interacting]
     Active Substance: ROSUVASTATIN CALCIUM
     Dosage: STRENGTH- 20 MG
     Route: 065
  17. CLOPIDOGREL [Interacting]
     Active Substance: CLOPIDOGREL BISULFATE
     Dosage: STRENGTH: 75 MG
     Route: 048
     Dates: start: 20180110, end: 201803
  18. BURANA [Suspect]
     Active Substance: IBUPROFEN
     Indication: MUSCULOSKELETAL PAIN
     Dosage: STRENGTH: 800 MG ()
     Route: 048
     Dates: start: 20161214
  19. PRIMASPAN [Suspect]
     Active Substance: ASPIRIN
     Dosage: UNK
  20. DULOXETINE. [Suspect]
     Active Substance: DULOXETINE
     Indication: PRODUCT USED FOR UNKNOWN INDICATION
     Dosage: UNK
     Route: 065
  21. ROSUVASTATIN ORION 20MG [Suspect]
     Active Substance: ROSUVASTATIN CALCIUM
     Indication: ANGIOPLASTY
     Dosage: 20 MILLIGRAM
     Route: 048
     Dates: start: 201801, end: 201802
  22. CLOPIDOGREL [Interacting]
     Active Substance: CLOPIDOGREL BISULFATE
     Indication: PRODUCT USED FOR UNKNOWN INDICATION
     Dosage: STRENGTH: 75 MG
     Route: 048
     Dates: start: 20180110, end: 201803
  23. CLOPIDOGREL [Interacting]
     Active Substance: CLOPIDOGREL BISULFATE
     Dosage: STRENGTH: 75 MG
     Route: 048
     Dates: start: 20180110, end: 201804

REACTIONS (44)
  - Osteoarthritis [Not Recovered/Not Resolved]
  - Paraesthesia [Not Recovered/Not Resolved]
  - Gait inability [Not Recovered/Not Resolved]
  - Palpitations [Not Recovered/Not Resolved]
  - Facial pain [Not Recovered/Not Resolved]
  - Rash macular [Not Recovered/Not Resolved]
  - Muscle strain [Unknown]
  - Myalgia [Not Recovered/Not Resolved]
  - Product prescribing error [Unknown]
  - Facial spasm [Not Recovered/Not Resolved]
  - Hernia [Unknown]
  - Abdominal distension [Unknown]
  - Hypotension [Unknown]
  - Movement disorder [Not Recovered/Not Resolved]
  - Abdominal pain upper [Not Recovered/Not Resolved]
  - Muscle twitching [Not Recovered/Not Resolved]
  - Headache [Not Recovered/Not Resolved]
  - Dyspnoea [Recovered/Resolved]
  - Arthralgia [Not Recovered/Not Resolved]
  - Acne [Recovered/Resolved]
  - Amnesia [Not Recovered/Not Resolved]
  - Malaise [Unknown]
  - Loss of control of legs [Unknown]
  - Haematoma [Not Recovered/Not Resolved]
  - Eye colour change [Not Recovered/Not Resolved]
  - Asthenia [Not Recovered/Not Resolved]
  - Drug interaction [Unknown]
  - Scleral discolouration [Not Recovered/Not Resolved]
  - Inflammatory marker increased [Unknown]
  - Vision blurred [Not Recovered/Not Resolved]
  - Condition aggravated [Not Recovered/Not Resolved]
  - Nervous system disorder [Unknown]
  - Abdominal discomfort [Unknown]
  - Thyroid function test abnormal [Unknown]
  - Pain in extremity [Unknown]
  - Diverticulitis [Not Recovered/Not Resolved]
  - Angina pectoris [Unknown]
  - Weight decreased [Unknown]
  - Muscular weakness [Unknown]
  - Muscle spasms [Not Recovered/Not Resolved]
  - Confusional state [Unknown]
  - Rash papular [Not Recovered/Not Resolved]
  - Nerve compression [Not Recovered/Not Resolved]
  - Palmar erythema [Unknown]

NARRATIVE: CASE EVENT DATE: 2016
